FAERS Safety Report 20488030 (Version 2)
Quarter: 2022Q2

REPORT INFORMATION
  Report Type: Report from Study
  Country: US (occurrence: US)
  Receive Date: 20220218
  Receipt Date: 20220401
  Transmission Date: 20220721
  Serious: No
  Sender: FDA-Public Use
  Company Number: US-Ipsen Biopharmaceuticals, Inc.-2022-04158

PATIENT
  Age: 13 Year
  Sex: Male

DRUGS (2)
  1. INCRELEX [Suspect]
     Active Substance: MECASERMIN
     Indication: Short stature
     Dosage: 14 UNITS BID
     Route: 058
     Dates: start: 202107
  2. INCRELEX [Suspect]
     Active Substance: MECASERMIN
     Indication: Off label use

REACTIONS (7)
  - Weight decreased [Recovering/Resolving]
  - Hair texture abnormal [Recovering/Resolving]
  - Skin tightness [Recovering/Resolving]
  - Pain in extremity [Recovering/Resolving]
  - Arthralgia [Recovering/Resolving]
  - Bone pain [Recovering/Resolving]
  - Off label use [Unknown]

NARRATIVE: CASE EVENT DATE: 20210701
